FAERS Safety Report 23751564 (Version 3)
Quarter: 2024Q2

REPORT INFORMATION
  Report Type: Report from Study
  Country: IE (occurrence: IE)
  Receive Date: 20240417
  Receipt Date: 20240509
  Transmission Date: 20240717
  Serious: Yes (Hospitalization, Other)
  Sender: FDA-Public Use
  Company Number: IE-SUN PHARMACEUTICAL INDUSTRIES LTD-2024R1-440350

PATIENT
  Age: 56 Year
  Sex: Female
  Weight: 98.3 kg

DRUGS (11)
  1. TRASTUZUMAB [Suspect]
     Active Substance: TRASTUZUMAB
     Indication: Oesophageal adenocarcinoma
     Dosage: FIRST CYCLE, 8 MILLIGRAM/KILOGRAM
     Route: 042
     Dates: start: 20240103, end: 20240305
  2. TRASTUZUMAB [Suspect]
     Active Substance: TRASTUZUMAB
     Dosage: 6 MG/KG
     Route: 042
     Dates: start: 20240305
  3. CAPECITABINE [Suspect]
     Active Substance: CAPECITABINE
     Indication: Oesophageal adenocarcinoma
     Dosage: 1000 MILLIGRAM (2 WEEKS ON AND 1 WEEK OFF)
     Route: 048
     Dates: start: 20240103, end: 20240315
  4. CAPECITABINE [Suspect]
     Active Substance: CAPECITABINE
     Dosage: 750 MG/M2
  5. OXALIPLATIN [Suspect]
     Active Substance: OXALIPLATIN
     Indication: Oesophageal adenocarcinoma
     Dosage: 130 MILLIGRAM/SQ. METER EVERY 3 WEEKS
     Route: 042
  6. OXALIPLATIN [Suspect]
     Active Substance: OXALIPLATIN
     Dosage: 130 MILLIGRAM/SQ. METER EVERY 3 WEEKS
     Route: 042
  7. ESOMEPRAZOLE [Concomitant]
     Active Substance: ESOMEPRAZOLE
     Indication: Enzyme inhibition
     Dosage: UNK
     Route: 065
     Dates: start: 202308
  8. ALPRAZOLAM [Concomitant]
     Active Substance: ALPRAZOLAM
     Dosage: UNK
     Route: 065
     Dates: start: 20240123
  9. DEXAMETHASONE [Concomitant]
     Active Substance: DEXAMETHASONE
     Indication: Prophylaxis of nausea and vomiting
     Dosage: UNK
     Route: 065
     Dates: start: 20240306, end: 20240307
  10. IMODIUM [Concomitant]
     Active Substance: LOPERAMIDE HYDROCHLORIDE
     Indication: Antidiarrhoeal supportive care
     Dosage: UNK
     Route: 065
     Dates: start: 20240103
  11. CYCLIZINE [Concomitant]
     Active Substance: CYCLIZINE
     Indication: Antiemetic supportive care
     Dosage: UNK
     Route: 065
     Dates: start: 20240103

REACTIONS (4)
  - Acute kidney injury [Recovered/Resolved]
  - Diarrhoea [Recovered/Resolved]
  - Hypokalaemia [Recovered/Resolved]
  - Fatigue [Recovered/Resolved]

NARRATIVE: CASE EVENT DATE: 20240320
